FAERS Safety Report 5478358-4 (Version None)
Quarter: 2007Q4

REPORT INFORMATION
  Report Type: 
  Country: None (occurrence: None)
  Receive Date: 20071005
  Receipt Date: 20071002
  Transmission Date: 20080405
  Serious: Yes (Other)
  Sender: FDA-Public Use
  Company Number: A0686175A

PATIENT
  Sex: Male

DRUGS (4)
  1. AVANDIA [Suspect]
     Indication: DIABETES MELLITUS
     Dosage: 8MG PER DAY
  2. METFORMIN HCL [Concomitant]
     Dosage: 2000MG PER DAY
  3. GLYBURIDE [Concomitant]
     Dosage: 20MG PER DAY
  4. VASOTEC [Concomitant]
     Dosage: 20MG PER DAY

REACTIONS (1)
  - GLAUCOMA [None]
